FAERS Safety Report 8768568 (Version 1)
Quarter: 2012Q4

REPORT INFORMATION
  Report Type: Report from Study
  Country: SE (occurrence: SE)
  Receive Date: 20120906
  Receipt Date: 20120906
  Transmission Date: 20130627
  Serious: Yes (Death, Hospitalization)
  Sender: FDA-Public Use
  Company Number: SE-ROCHE-1114812

PATIENT

DRUGS (4)
  1. AVASTIN [Suspect]
     Indication: COLON CANCER
     Dosage: Induction phase
     Route: 065
  2. XELODA [Suspect]
     Indication: COLON CANCER
     Dosage: Induction phase
     Route: 065
  3. XELODA [Suspect]
     Dosage: Maintanence pahse as Mut-X
     Route: 065
     Dates: start: 20120308, end: 20120705
  4. IRINOTECAN [Suspect]
     Indication: COLON CANCER
     Dosage: Induction phase
     Route: 065

REACTIONS (6)
  - Abdominal pain [Fatal]
  - Hypercalcaemia [Fatal]
  - Hypokalaemia [Fatal]
  - Unevaluable event [Fatal]
  - Hepatic enzyme increased [Fatal]
  - Disease progression [Fatal]
